FAERS Safety Report 7801621-6 (Version None)
Quarter: 2011Q4

REPORT INFORMATION
  Report Type: 
  Country: None (occurrence: None)
  Receive Date: 20111007
  Receipt Date: 20110926
  Transmission Date: 20120403
  Serious: Yes (Hospitalization)
  Sender: FDA-Public Use
  Company Number: FR-ELI_LILLY_AND_COMPANY-FR201108001869

PATIENT
  Sex: Female

DRUGS (7)
  1. FORTEO [Suspect]
     Dosage: 1 DF, QD
     Route: 058
  2. FUROSEMIDE [Concomitant]
     Indication: HYPERTENSION
     Dosage: 1 DF, QD
     Route: 048
  3. RABEPRAZOLE SODIUM [Concomitant]
     Dosage: 20 MG, UNK
     Route: 048
     Dates: start: 20110630
  4. ARICEPT [Concomitant]
     Dosage: 10 MG, QD
     Route: 048
  5. FORTEO [Suspect]
     Dosage: 1 DF, QD
     Route: 058
     Dates: start: 20110705, end: 20110716
  6. UVEDOSE [Concomitant]
     Dosage: UNK
     Route: 048
     Dates: start: 20110630
  7. CITALOPRAM HYDROBROMIDE [Concomitant]
     Dosage: 1 DF, QD
     Route: 048

REACTIONS (1)
  - TACHYCARDIA [None]
